FAERS Safety Report 17817249 (Version 9)
Quarter: 2025Q2

REPORT INFORMATION
  Report Type: Spontaneous
  Country: DE (occurrence: DE)
  Receive Date: 20200522
  Receipt Date: 20250512
  Transmission Date: 20250717
  Serious: Yes (Hospitalization, Other)
  Sender: MYLAN
  Company Number: DE-002147023-NVSC2020DE118596

PATIENT
  Age: 75 Year
  Sex: Female
  Weight: 71.7 kg

DRUGS (212)
  1. VALSARTAN [Suspect]
     Active Substance: VALSARTAN
     Indication: Hypertension
     Dosage: 160 MG, QD
     Dates: start: 201203, end: 2018
  2. VALSARTAN [Suspect]
     Active Substance: VALSARTAN
     Dosage: 160 MG, QD
     Route: 065
     Dates: start: 201203, end: 2018
  3. VALSARTAN [Suspect]
     Active Substance: VALSARTAN
     Dosage: 160 MG, QD
     Route: 065
     Dates: start: 201203, end: 2018
  4. VALSARTAN [Suspect]
     Active Substance: VALSARTAN
     Dosage: 160 MG, QD
     Dates: start: 201203, end: 2018
  5. VALSARTAN [Suspect]
     Active Substance: VALSARTAN
     Dosage: 0.5 DF, BID (160 MG) IN THE MORNING AND EVENING
     Route: 065
     Dates: start: 201410, end: 2018
  6. VALSARTAN [Suspect]
     Active Substance: VALSARTAN
     Dosage: 0.5 DF, BID (160 MG) IN THE MORNING AND EVENING
     Dates: start: 201410, end: 2018
  7. VALSARTAN [Suspect]
     Active Substance: VALSARTAN
     Dosage: 0.5 DF, BID (160 MG) IN THE MORNING AND EVENING
     Dates: start: 201410, end: 2018
  8. VALSARTAN [Suspect]
     Active Substance: VALSARTAN
     Dosage: 0.5 DF, BID (160 MG) IN THE MORNING AND EVENING
     Route: 065
     Dates: start: 201410, end: 2018
  9. VALSARTAN [Suspect]
     Active Substance: VALSARTAN
  10. VALSARTAN [Suspect]
     Active Substance: VALSARTAN
     Route: 065
  11. VALSARTAN [Suspect]
     Active Substance: VALSARTAN
  12. VALSARTAN [Suspect]
     Active Substance: VALSARTAN
     Route: 065
  13. VALSARTAN [Suspect]
     Active Substance: VALSARTAN
     Dosage: 0.5 DF, BID (160 MG) IN THE MORNING AND EVENING
     Route: 065
     Dates: start: 20160219, end: 201803
  14. VALSARTAN [Suspect]
     Active Substance: VALSARTAN
     Dosage: 0.5 DF, BID (160 MG) IN THE MORNING AND EVENING
     Dates: start: 20160219, end: 201803
  15. VALSARTAN [Suspect]
     Active Substance: VALSARTAN
     Dosage: 0.5 DF, BID (160 MG) IN THE MORNING AND EVENING
     Dates: start: 20160219, end: 201803
  16. VALSARTAN [Suspect]
     Active Substance: VALSARTAN
     Dosage: 0.5 DF, BID (160 MG) IN THE MORNING AND EVENING
     Route: 065
     Dates: start: 20160219, end: 201803
  17. VALSARTAN [Suspect]
     Active Substance: VALSARTAN
     Dosage: 160 MG, QD
     Route: 065
  18. VALSARTAN [Suspect]
     Active Substance: VALSARTAN
     Dosage: 160 MG, QD
  19. VALSARTAN [Suspect]
     Active Substance: VALSARTAN
     Dosage: 160 MG, QD
  20. VALSARTAN [Suspect]
     Active Substance: VALSARTAN
     Dosage: 160 MG, QD
     Route: 065
  21. VALSARTAN [Suspect]
     Active Substance: VALSARTAN
     Route: 065
  22. VALSARTAN [Suspect]
     Active Substance: VALSARTAN
  23. VALSARTAN [Suspect]
     Active Substance: VALSARTAN
  24. VALSARTAN [Suspect]
     Active Substance: VALSARTAN
     Route: 065
  25. VALSARTAN [Suspect]
     Active Substance: VALSARTAN
  26. VALSARTAN [Suspect]
     Active Substance: VALSARTAN
  27. VALSARTAN [Suspect]
     Active Substance: VALSARTAN
     Route: 065
  28. VALSARTAN [Suspect]
     Active Substance: VALSARTAN
     Route: 065
  29. VALSARTAN [Suspect]
     Active Substance: VALSARTAN
     Dosage: 1 DOSAGE FORM, QD (160 MG) IN THE MOR AND EVE
     Dates: start: 20141029, end: 2018
  30. VALSARTAN [Suspect]
     Active Substance: VALSARTAN
     Dosage: 1 DOSAGE FORM, QD (160 MG) IN THE MOR AND EVE
     Dates: start: 20141029, end: 2018
  31. VALSARTAN [Suspect]
     Active Substance: VALSARTAN
     Dosage: 1 DOSAGE FORM, QD (160 MG) IN THE MOR AND EVE
     Route: 065
     Dates: start: 20141029, end: 2018
  32. VALSARTAN [Suspect]
     Active Substance: VALSARTAN
     Dosage: 1 DOSAGE FORM, QD (160 MG) IN THE MOR AND EVE
     Route: 065
     Dates: start: 20141029, end: 2018
  33. OMEPRAZOLE [Suspect]
     Active Substance: OMEPRAZOLE
     Indication: Product used for unknown indication
  34. OMEPRAZOLE [Suspect]
     Active Substance: OMEPRAZOLE
     Route: 065
  35. OMEPRAZOLE [Suspect]
     Active Substance: OMEPRAZOLE
     Route: 065
  36. OMEPRAZOLE [Suspect]
     Active Substance: OMEPRAZOLE
  37. IBUPROFEN [Suspect]
     Active Substance: IBUPROFEN
     Indication: Product used for unknown indication
  38. IBUPROFEN [Suspect]
     Active Substance: IBUPROFEN
     Route: 065
  39. IBUPROFEN [Suspect]
     Active Substance: IBUPROFEN
     Route: 065
  40. IBUPROFEN [Suspect]
     Active Substance: IBUPROFEN
  41. METAMIZOLE SODIUM [Concomitant]
     Active Substance: METAMIZOLE SODIUM
     Indication: Orthopaedic procedure
  42. METAMIZOLE SODIUM [Concomitant]
     Active Substance: METAMIZOLE SODIUM
     Route: 065
  43. METAMIZOLE SODIUM [Concomitant]
     Active Substance: METAMIZOLE SODIUM
     Route: 065
  44. METAMIZOLE SODIUM [Concomitant]
     Active Substance: METAMIZOLE SODIUM
  45. AMLODIPINE BESYLATE [Concomitant]
     Active Substance: AMLODIPINE BESYLATE
     Indication: Product used for unknown indication
     Dosage: 5 MG, QD (IN THE EVENING)
  46. AMLODIPINE BESYLATE [Concomitant]
     Active Substance: AMLODIPINE BESYLATE
     Dosage: 5 MG, QD (IN THE EVENING)
  47. AMLODIPINE BESYLATE [Concomitant]
     Active Substance: AMLODIPINE BESYLATE
     Dosage: 5 MG, QD (IN THE EVENING)
     Route: 065
  48. AMLODIPINE BESYLATE [Concomitant]
     Active Substance: AMLODIPINE BESYLATE
     Dosage: 5 MG, QD (IN THE EVENING)
     Route: 065
  49. AMLODIPINE BESYLATE [Concomitant]
     Active Substance: AMLODIPINE BESYLATE
     Dosage: 1X10MG 0.5 IN THE MOR, 0.5 IN THE EVE (0.5-0-0.5)
  50. AMLODIPINE BESYLATE [Concomitant]
     Active Substance: AMLODIPINE BESYLATE
     Dosage: 1X10MG 0.5 IN THE MOR, 0.5 IN THE EVE (0.5-0-0.5)
  51. AMLODIPINE BESYLATE [Concomitant]
     Active Substance: AMLODIPINE BESYLATE
     Dosage: 1X10MG 0.5 IN THE MOR, 0.5 IN THE EVE (0.5-0-0.5)
     Route: 065
  52. AMLODIPINE BESYLATE [Concomitant]
     Active Substance: AMLODIPINE BESYLATE
     Dosage: 1X10MG 0.5 IN THE MOR, 0.5 IN THE EVE (0.5-0-0.5)
     Route: 065
  53. ATORVASTATIN [Concomitant]
     Active Substance: ATORVASTATIN
     Indication: Product used for unknown indication
     Dosage: 20 MG, QD (IN THE EVENING)
  54. ATORVASTATIN [Concomitant]
     Active Substance: ATORVASTATIN
     Dosage: 20 MG, QD (IN THE EVENING)
  55. ATORVASTATIN [Concomitant]
     Active Substance: ATORVASTATIN
     Dosage: 20 MG, QD (IN THE EVENING)
     Route: 065
  56. ATORVASTATIN [Concomitant]
     Active Substance: ATORVASTATIN
     Dosage: 20 MG, QD (IN THE EVENING)
     Route: 065
  57. ATORVASTATIN [Concomitant]
     Active Substance: ATORVASTATIN
     Dosage: 1X 10 MG ONCE IN THE EVENING (0-0-1)
  58. ATORVASTATIN [Concomitant]
     Active Substance: ATORVASTATIN
     Dosage: 1X 10 MG ONCE IN THE EVENING (0-0-1)
  59. ATORVASTATIN [Concomitant]
     Active Substance: ATORVASTATIN
     Dosage: 1X 10 MG ONCE IN THE EVENING (0-0-1)
     Route: 065
  60. ATORVASTATIN [Concomitant]
     Active Substance: ATORVASTATIN
     Dosage: 1X 10 MG ONCE IN THE EVENING (0-0-1)
     Route: 065
  61. PANTOPRAZOLE [Concomitant]
     Active Substance: PANTOPRAZOLE
     Indication: Product used for unknown indication
     Dosage: 20 MG, QD (IN THE MORNING)
  62. PANTOPRAZOLE [Concomitant]
     Active Substance: PANTOPRAZOLE
     Dosage: 20 MG, QD (IN THE MORNING)
     Route: 065
  63. PANTOPRAZOLE [Concomitant]
     Active Substance: PANTOPRAZOLE
     Dosage: 20 MG, QD (IN THE MORNING)
     Route: 065
  64. PANTOPRAZOLE [Concomitant]
     Active Substance: PANTOPRAZOLE
     Dosage: 20 MG, QD (IN THE MORNING)
  65. ALBUTEROL [Concomitant]
     Active Substance: ALBUTEROL
     Indication: Product used for unknown indication
  66. ALBUTEROL [Concomitant]
     Active Substance: ALBUTEROL
  67. ALBUTEROL [Concomitant]
     Active Substance: ALBUTEROL
     Route: 065
  68. ALBUTEROL [Concomitant]
     Active Substance: ALBUTEROL
     Route: 065
  69. ALBUTEROL [Concomitant]
     Active Substance: ALBUTEROL
  70. ALBUTEROL [Concomitant]
     Active Substance: ALBUTEROL
  71. ALBUTEROL [Concomitant]
     Active Substance: ALBUTEROL
     Route: 065
  72. ALBUTEROL [Concomitant]
     Active Substance: ALBUTEROL
     Route: 065
  73. Herzass [Concomitant]
     Indication: Product used for unknown indication
     Dosage: 100 MG, QD (IN THE MORNING)
     Route: 065
  74. Herzass [Concomitant]
     Dosage: 100 MG, QD (IN THE MORNING)
  75. Herzass [Concomitant]
     Dosage: 100 MG, QD (IN THE MORNING)
  76. Herzass [Concomitant]
     Dosage: 100 MG, QD (IN THE MORNING)
     Route: 065
  77. Herzass [Concomitant]
     Dosage: 1 DF, QD (100 MG) IN MOR(100 TABLETS)
     Route: 065
  78. Herzass [Concomitant]
     Dosage: 1 DF, QD (100 MG) IN MOR(100 TABLETS)
  79. Herzass [Concomitant]
     Dosage: 1 DF, QD (100 MG) IN MOR(100 TABLETS)
  80. Herzass [Concomitant]
     Dosage: 1 DF, QD (100 MG) IN MOR(100 TABLETS)
     Route: 065
  81. METOPROLOL SUCCINATE [Concomitant]
     Active Substance: METOPROLOL SUCCINATE
     Indication: Product used for unknown indication
     Dosage: 95 MG, BID (IN THE MORNING AND EVENING)
     Route: 065
  82. METOPROLOL SUCCINATE [Concomitant]
     Active Substance: METOPROLOL SUCCINATE
     Dosage: 95 MG, BID (IN THE MORNING AND EVENING)
  83. METOPROLOL SUCCINATE [Concomitant]
     Active Substance: METOPROLOL SUCCINATE
     Dosage: 95 MG, BID (IN THE MORNING AND EVENING)
  84. METOPROLOL SUCCINATE [Concomitant]
     Active Substance: METOPROLOL SUCCINATE
     Dosage: 95 MG, BID (IN THE MORNING AND EVENING)
     Route: 065
  85. METOPROLOL SUCCINATE [Concomitant]
     Active Substance: METOPROLOL SUCCINATE
     Dosage: 0.5 MG, (47.5 MG) BID IN MOR-EVE (100 TABLETS)
     Route: 065
  86. METOPROLOL SUCCINATE [Concomitant]
     Active Substance: METOPROLOL SUCCINATE
     Dosage: 0.5 MG, (47.5 MG) BID IN MOR-EVE (100 TABLETS)
  87. METOPROLOL SUCCINATE [Concomitant]
     Active Substance: METOPROLOL SUCCINATE
     Dosage: 0.5 MG, (47.5 MG) BID IN MOR-EVE (100 TABLETS)
  88. METOPROLOL SUCCINATE [Concomitant]
     Active Substance: METOPROLOL SUCCINATE
     Dosage: 0.5 MG, (47.5 MG) BID IN MOR-EVE (100 TABLETS)
     Route: 065
  89. METOPROLOL SUCCINATE [Concomitant]
     Active Substance: METOPROLOL SUCCINATE
     Dosage: 0.5 MG, (47.5 MG) BID IN MOR-EVE(100 TABLETS)
     Route: 065
     Dates: start: 201812
  90. METOPROLOL SUCCINATE [Concomitant]
     Active Substance: METOPROLOL SUCCINATE
     Dosage: 0.5 MG, (47.5 MG) BID IN MOR-EVE(100 TABLETS)
     Dates: start: 201812
  91. METOPROLOL SUCCINATE [Concomitant]
     Active Substance: METOPROLOL SUCCINATE
     Dosage: 0.5 MG, (47.5 MG) BID IN MOR-EVE(100 TABLETS)
     Dates: start: 201812
  92. METOPROLOL SUCCINATE [Concomitant]
     Active Substance: METOPROLOL SUCCINATE
     Dosage: 0.5 MG, (47.5 MG) BID IN MOR-EVE(100 TABLETS)
     Route: 065
     Dates: start: 201812
  93. METOPROLOL SUCCINATE [Concomitant]
     Active Substance: METOPROLOL SUCCINATE
     Dosage: 0.5 MG, (95 MG) BID IN MOR-EVE
     Dates: start: 201812
  94. METOPROLOL SUCCINATE [Concomitant]
     Active Substance: METOPROLOL SUCCINATE
     Dosage: 0.5 MG, (95 MG) BID IN MOR-EVE
     Dates: start: 201812
  95. METOPROLOL SUCCINATE [Concomitant]
     Active Substance: METOPROLOL SUCCINATE
     Dosage: 0.5 MG, (95 MG) BID IN MOR-EVE
     Route: 065
     Dates: start: 201812
  96. METOPROLOL SUCCINATE [Concomitant]
     Active Substance: METOPROLOL SUCCINATE
     Dosage: 0.5 MG, (95 MG) BID IN MOR-EVE
     Route: 065
     Dates: start: 201812
  97. EDOXABAN TOSYLATE [Concomitant]
     Active Substance: EDOXABAN TOSYLATE
     Indication: Product used for unknown indication
     Dosage: 30 MG, QD (IN THE MORNING)
  98. EDOXABAN TOSYLATE [Concomitant]
     Active Substance: EDOXABAN TOSYLATE
     Dosage: 30 MG, QD (IN THE MORNING)
     Route: 065
  99. EDOXABAN TOSYLATE [Concomitant]
     Active Substance: EDOXABAN TOSYLATE
     Dosage: 30 MG, QD (IN THE MORNING)
     Route: 065
  100. EDOXABAN TOSYLATE [Concomitant]
     Active Substance: EDOXABAN TOSYLATE
     Dosage: 30 MG, QD (IN THE MORNING)
  101. BECLOMETHASONE DIPROPIONATE [Concomitant]
     Active Substance: BECLOMETHASONE DIPROPIONATE
     Indication: Lung disorder
     Dosage: 100 UG, BID (IN THE MORN AND EVEN)
  102. BECLOMETHASONE DIPROPIONATE [Concomitant]
     Active Substance: BECLOMETHASONE DIPROPIONATE
     Dosage: 100 UG, BID (IN THE MORN AND EVEN)
     Route: 065
  103. BECLOMETHASONE DIPROPIONATE [Concomitant]
     Active Substance: BECLOMETHASONE DIPROPIONATE
     Dosage: 100 UG, BID (IN THE MORN AND EVEN)
     Route: 065
  104. BECLOMETHASONE DIPROPIONATE [Concomitant]
     Active Substance: BECLOMETHASONE DIPROPIONATE
     Dosage: 100 UG, BID (IN THE MORN AND EVEN)
  105. VITAMIN D3 [Concomitant]
     Active Substance: CHOLECALCIFEROL
     Indication: Product used for unknown indication
     Dosage: 1 DOSAGE FORM, QD IN MORNING (100
  106. VITAMIN D3 [Concomitant]
     Active Substance: CHOLECALCIFEROL
     Dosage: 1 DOSAGE FORM, QD IN MORNING (100
     Route: 065
  107. VITAMIN D3 [Concomitant]
     Active Substance: CHOLECALCIFEROL
     Dosage: 1 DOSAGE FORM, QD IN MORNING (100
     Route: 065
  108. VITAMIN D3 [Concomitant]
     Active Substance: CHOLECALCIFEROL
     Dosage: 1 DOSAGE FORM, QD IN MORNING (100
  109. SIMVASTATIN [Concomitant]
     Active Substance: SIMVASTATIN
     Indication: Product used for unknown indication
     Dosage: 0.5 MG, QD (40 MG) IN EVENING
  110. SIMVASTATIN [Concomitant]
     Active Substance: SIMVASTATIN
     Dosage: 0.5 MG, QD (40 MG) IN EVENING
  111. SIMVASTATIN [Concomitant]
     Active Substance: SIMVASTATIN
     Dosage: 0.5 MG, QD (40 MG) IN EVENING
     Route: 065
  112. SIMVASTATIN [Concomitant]
     Active Substance: SIMVASTATIN
     Dosage: 0.5 MG, QD (40 MG) IN EVENING
     Route: 065
  113. SIMVASTATIN [Concomitant]
     Active Substance: SIMVASTATIN
     Dosage: 1 DF, QD (30 MG) AT NIGHT
     Dates: start: 201702
  114. SIMVASTATIN [Concomitant]
     Active Substance: SIMVASTATIN
     Dosage: 1 DF, QD (30 MG) AT NIGHT
     Dates: start: 201702
  115. SIMVASTATIN [Concomitant]
     Active Substance: SIMVASTATIN
     Dosage: 1 DF, QD (30 MG) AT NIGHT
     Route: 065
     Dates: start: 201702
  116. SIMVASTATIN [Concomitant]
     Active Substance: SIMVASTATIN
     Dosage: 1 DF, QD (30 MG) AT NIGHT
     Route: 065
     Dates: start: 201702
  117. PANTOZOL [Concomitant]
     Active Substance: PANTOPRAZOLE SODIUM
     Indication: Product used for unknown indication
     Dosage: 1 DF, QD (20 MG) IN THE MORNING
  118. PANTOZOL [Concomitant]
     Active Substance: PANTOPRAZOLE SODIUM
     Dosage: 1 DF, QD (20 MG) IN THE MORNING
     Route: 065
  119. PANTOZOL [Concomitant]
     Active Substance: PANTOPRAZOLE SODIUM
     Dosage: 1 DF, QD (20 MG) IN THE MORNING
     Route: 065
  120. PANTOZOL [Concomitant]
     Active Substance: PANTOPRAZOLE SODIUM
     Dosage: 1 DF, QD (20 MG) IN THE MORNING
  121. METOPROLOL [Concomitant]
     Active Substance: METOPROLOL
     Indication: Product used for unknown indication
     Dosage: 1 DF, QD, 0.5 DF, (0.5-0-0.
  122. METOPROLOL [Concomitant]
     Active Substance: METOPROLOL
     Dosage: 1 DF, QD, 0.5 DF, (0.5-0-0.
     Route: 065
  123. METOPROLOL [Concomitant]
     Active Substance: METOPROLOL
     Dosage: 1 DF, QD, 0.5 DF, (0.5-0-0.
     Route: 065
  124. METOPROLOL [Concomitant]
     Active Substance: METOPROLOL
     Dosage: 1 DF, QD, 0.5 DF, (0.5-0-0.
  125. CHOLECALCIFEROL [Concomitant]
     Active Substance: CHOLECALCIFEROL
     Indication: Product used for unknown indication
     Dosage: 1000 IU, QD (1X 1000 IU, QD IN THE MORNING (1-0-0)
  126. CHOLECALCIFEROL [Concomitant]
     Active Substance: CHOLECALCIFEROL
     Dosage: 1000 IU, QD (1X 1000 IU, QD IN THE MORNING (1-0-0)
     Route: 065
  127. CHOLECALCIFEROL [Concomitant]
     Active Substance: CHOLECALCIFEROL
     Dosage: 1000 IU, QD (1X 1000 IU, QD IN THE MORNING (1-0-0)
     Route: 065
  128. CHOLECALCIFEROL [Concomitant]
     Active Substance: CHOLECALCIFEROL
     Dosage: 1000 IU, QD (1X 1000 IU, QD IN THE MORNING (1-0-0)
  129. EZETIMIBE [Concomitant]
     Active Substance: EZETIMIBE
     Indication: Product used for unknown indication
     Dosage: 1X 10 MG ONCE IN THE EVENING (0-0-1)
  130. EZETIMIBE [Concomitant]
     Active Substance: EZETIMIBE
     Dosage: 1X 10 MG ONCE IN THE EVENING (0-0-1)
     Route: 065
  131. EZETIMIBE [Concomitant]
     Active Substance: EZETIMIBE
     Dosage: 1X 10 MG ONCE IN THE EVENING (0-0-1)
     Route: 065
  132. EZETIMIBE [Concomitant]
     Active Substance: EZETIMIBE
     Dosage: 1X 10 MG ONCE IN THE EVENING (0-0-1)
  133. TORSEMIDE [Concomitant]
     Active Substance: TORSEMIDE
     Indication: Product used for unknown indication
     Dosage: 1X 5 MG(ONCE DAILY IN THE MOR(1-0-0)
  134. TORSEMIDE [Concomitant]
     Active Substance: TORSEMIDE
     Dosage: 1X 5 MG(ONCE DAILY IN THE MOR(1-0-0)
  135. TORSEMIDE [Concomitant]
     Active Substance: TORSEMIDE
     Dosage: 1X 5 MG(ONCE DAILY IN THE MOR(1-0-0)
     Route: 065
  136. TORSEMIDE [Concomitant]
     Active Substance: TORSEMIDE
     Dosage: 1X 5 MG(ONCE DAILY IN THE MOR(1-0-0)
     Route: 065
  137. TORSEMIDE [Concomitant]
     Active Substance: TORSEMIDE
     Dosage: UNK, QD ((ONCE DAILY IN THE MORNING (1-0-0)
  138. TORSEMIDE [Concomitant]
     Active Substance: TORSEMIDE
     Dosage: UNK, QD ((ONCE DAILY IN THE MORNING (1-0-0)
  139. TORSEMIDE [Concomitant]
     Active Substance: TORSEMIDE
     Dosage: UNK, QD ((ONCE DAILY IN THE MORNING (1-0-0)
     Route: 065
  140. TORSEMIDE [Concomitant]
     Active Substance: TORSEMIDE
     Dosage: UNK, QD ((ONCE DAILY IN THE MORNING (1-0-0)
     Route: 065
  141. METAMIZOLE [Concomitant]
     Active Substance: METAMIZOLE
     Indication: Product used for unknown indication
  142. METAMIZOLE [Concomitant]
     Active Substance: METAMIZOLE
     Route: 065
  143. METAMIZOLE [Concomitant]
     Active Substance: METAMIZOLE
     Route: 065
  144. METAMIZOLE [Concomitant]
     Active Substance: METAMIZOLE
  145. BECLOMETHASONE [Concomitant]
     Active Substance: BECLOMETHASONE
     Indication: Product used for unknown indication
     Dosage: 2 DF, QD 1 DOSAGE FORM, BID ONCE IN T
  146. BECLOMETHASONE [Concomitant]
     Active Substance: BECLOMETHASONE
     Dosage: 2 DF, QD 1 DOSAGE FORM, BID ONCE IN T
     Route: 065
  147. BECLOMETHASONE [Concomitant]
     Active Substance: BECLOMETHASONE
     Dosage: 2 DF, QD 1 DOSAGE FORM, BID ONCE IN T
     Route: 065
  148. BECLOMETHASONE [Concomitant]
     Active Substance: BECLOMETHASONE
     Dosage: 2 DF, QD 1 DOSAGE FORM, BID ONCE IN T
  149. ALENDRONIC ACID [Concomitant]
     Active Substance: ALENDRONIC ACID
     Indication: Product used for unknown indication
     Dosage: 1X 70 MG QW(SUNDAY)
  150. ALENDRONIC ACID [Concomitant]
     Active Substance: ALENDRONIC ACID
     Dosage: 1X 70 MG QW(SUNDAY)
     Route: 065
  151. ALENDRONIC ACID [Concomitant]
     Active Substance: ALENDRONIC ACID
     Dosage: 1X 70 MG QW(SUNDAY)
     Route: 065
  152. ALENDRONIC ACID [Concomitant]
     Active Substance: ALENDRONIC ACID
     Dosage: 1X 70 MG QW(SUNDAY)
  153. Pantoprazol CT [Concomitant]
     Indication: Product used for unknown indication
     Dosage: 1X 20 MG IN THE MORNING (1-0
  154. Pantoprazol CT [Concomitant]
     Dosage: 1X 20 MG IN THE MORNING (1-0
     Route: 065
  155. Pantoprazol CT [Concomitant]
     Dosage: 1X 20 MG IN THE MORNING (1-0
     Route: 065
  156. Pantoprazol CT [Concomitant]
     Dosage: 1X 20 MG IN THE MORNING (1-0
  157. Metamizole;Paracetamol [Concomitant]
     Indication: Product used for unknown indication
  158. Metamizole;Paracetamol [Concomitant]
     Route: 065
  159. Metamizole;Paracetamol [Concomitant]
     Route: 065
  160. Metamizole;Paracetamol [Concomitant]
  161. LISINOPRIL [Concomitant]
     Active Substance: LISINOPRIL
     Indication: Product used for unknown indication
  162. LISINOPRIL [Concomitant]
     Active Substance: LISINOPRIL
     Route: 065
  163. LISINOPRIL [Concomitant]
     Active Substance: LISINOPRIL
     Route: 065
  164. LISINOPRIL [Concomitant]
     Active Substance: LISINOPRIL
  165. AMOXICILLIN [Concomitant]
     Active Substance: AMOXICILLIN
     Indication: Product used for unknown indication
  166. AMOXICILLIN [Concomitant]
     Active Substance: AMOXICILLIN
     Route: 065
  167. AMOXICILLIN [Concomitant]
     Active Substance: AMOXICILLIN
     Route: 065
  168. AMOXICILLIN [Concomitant]
     Active Substance: AMOXICILLIN
  169. BETAMETHASONE [Concomitant]
     Active Substance: BETAMETHASONE
     Indication: Product used for unknown indication
  170. BETAMETHASONE [Concomitant]
     Active Substance: BETAMETHASONE
     Route: 065
  171. BETAMETHASONE [Concomitant]
     Active Substance: BETAMETHASONE
     Route: 065
  172. BETAMETHASONE [Concomitant]
     Active Substance: BETAMETHASONE
  173. Bromelaine [Concomitant]
     Indication: Product used for unknown indication
  174. Bromelaine [Concomitant]
     Route: 065
  175. Bromelaine [Concomitant]
     Route: 065
  176. Bromelaine [Concomitant]
  177. CLARITHROMYCIN [Concomitant]
     Active Substance: CLARITHROMYCIN
     Indication: Product used for unknown indication
  178. CLARITHROMYCIN [Concomitant]
     Active Substance: CLARITHROMYCIN
     Route: 065
  179. CLARITHROMYCIN [Concomitant]
     Active Substance: CLARITHROMYCIN
     Route: 065
  180. CLARITHROMYCIN [Concomitant]
     Active Substance: CLARITHROMYCIN
  181. NITROGLYCERIN [Concomitant]
     Active Substance: NITROGLYCERIN
     Indication: Product used for unknown indication
  182. NITROGLYCERIN [Concomitant]
     Active Substance: NITROGLYCERIN
     Route: 065
  183. NITROGLYCERIN [Concomitant]
     Active Substance: NITROGLYCERIN
     Route: 065
  184. NITROGLYCERIN [Concomitant]
     Active Substance: NITROGLYCERIN
  185. ISOSORBIDE DINITRATE [Concomitant]
     Active Substance: ISOSORBIDE DINITRATE
     Indication: Product used for unknown indication
  186. ISOSORBIDE DINITRATE [Concomitant]
     Active Substance: ISOSORBIDE DINITRATE
     Route: 065
  187. ISOSORBIDE DINITRATE [Concomitant]
     Active Substance: ISOSORBIDE DINITRATE
     Route: 065
  188. ISOSORBIDE DINITRATE [Concomitant]
     Active Substance: ISOSORBIDE DINITRATE
  189. METOCLOPRAMIDE [Concomitant]
     Active Substance: METOCLOPRAMIDE
     Indication: Product used for unknown indication
  190. METOCLOPRAMIDE [Concomitant]
     Active Substance: METOCLOPRAMIDE
     Route: 065
  191. METOCLOPRAMIDE [Concomitant]
     Active Substance: METOCLOPRAMIDE
     Route: 065
  192. METOCLOPRAMIDE [Concomitant]
     Active Substance: METOCLOPRAMIDE
  193. METRONIDAZOLE [Concomitant]
     Active Substance: METRONIDAZOLE
     Indication: Product used for unknown indication
  194. METRONIDAZOLE [Concomitant]
     Active Substance: METRONIDAZOLE
     Route: 065
  195. METRONIDAZOLE [Concomitant]
     Active Substance: METRONIDAZOLE
     Route: 065
  196. METRONIDAZOLE [Concomitant]
     Active Substance: METRONIDAZOLE
  197. MOMETASONE FUROATE [Concomitant]
     Active Substance: MOMETASONE FUROATE
     Indication: Product used for unknown indication
  198. MOMETASONE FUROATE [Concomitant]
     Active Substance: MOMETASONE FUROATE
     Route: 065
  199. MOMETASONE FUROATE [Concomitant]
     Active Substance: MOMETASONE FUROATE
     Route: 065
  200. MOMETASONE FUROATE [Concomitant]
     Active Substance: MOMETASONE FUROATE
  201. PENTAERYTHRITOL TETRANITRATE [Concomitant]
     Active Substance: PENTAERYTHRITOL TETRANITRATE
     Indication: Product used for unknown indication
  202. PENTAERYTHRITOL TETRANITRATE [Concomitant]
     Active Substance: PENTAERYTHRITOL TETRANITRATE
     Route: 065
  203. PENTAERYTHRITOL TETRANITRATE [Concomitant]
     Active Substance: PENTAERYTHRITOL TETRANITRATE
     Route: 065
  204. PENTAERYTHRITOL TETRANITRATE [Concomitant]
     Active Substance: PENTAERYTHRITOL TETRANITRATE
  205. PIRETANIDE [Concomitant]
     Active Substance: PIRETANIDE
     Indication: Product used for unknown indication
  206. PIRETANIDE [Concomitant]
     Active Substance: PIRETANIDE
     Route: 065
  207. PIRETANIDE [Concomitant]
     Active Substance: PIRETANIDE
     Route: 065
  208. PIRETANIDE [Concomitant]
     Active Substance: PIRETANIDE
  209. PREDNICARBATE [Concomitant]
     Active Substance: PREDNICARBATE
     Indication: Product used for unknown indication
  210. PREDNICARBATE [Concomitant]
     Active Substance: PREDNICARBATE
     Route: 065
  211. PREDNICARBATE [Concomitant]
     Active Substance: PREDNICARBATE
     Route: 065
  212. PREDNICARBATE [Concomitant]
     Active Substance: PREDNICARBATE

REACTIONS (48)
  - Malaise [Recovered/Resolved]
  - Renal cell carcinoma [Recovered/Resolved]
  - Circulatory collapse [Recovered/Resolved]
  - Arrhythmia [Unknown]
  - Vomiting [Recovered/Resolved]
  - Restlessness [Recovered/Resolved]
  - Atrial fibrillation [Unknown]
  - Renal cyst [Unknown]
  - Renal atrophy [Unknown]
  - Osteochondrosis [Unknown]
  - Deafness neurosensory [Unknown]
  - Hypokalaemia [Unknown]
  - Chronic kidney disease [Unknown]
  - Pancreatic neoplasm [Unknown]
  - Haemangioma [Unknown]
  - Neoplasm malignant [Unknown]
  - Renal neoplasm [Unknown]
  - Tubulointerstitial nephritis [Unknown]
  - Hiatus hernia [Unknown]
  - Chronic gastritis [Unknown]
  - Blood glucose abnormal [Unknown]
  - Haemangioma of bone [Unknown]
  - Osteoarthritis [Unknown]
  - Body mass index abnormal [Unknown]
  - Obesity [Unknown]
  - Uterine leiomyoma [Unknown]
  - Varicose vein [Unknown]
  - Atrioventricular block first degree [Unknown]
  - Intervertebral disc disorder [Unknown]
  - Hyperlipidaemia [Unknown]
  - Coronary artery disease [Unknown]
  - Hepatic cyst [Unknown]
  - Asthma [Unknown]
  - Diverticulum intestinal [Unknown]
  - Hyperuricaemia [Unknown]
  - Hypercholesterolaemia [Unknown]
  - Pleural effusion [Unknown]
  - Glucose tolerance impaired [Unknown]
  - Mediastinal disorder [Unknown]
  - Intervertebral disc protrusion [Unknown]
  - Emotional distress [Unknown]
  - Anxiety disorder [Unknown]
  - Pancreatic cyst [Unknown]
  - Dizziness [Unknown]
  - Urinary tract infection bacterial [Unknown]
  - Anaemia [Unknown]
  - Panic disorder [Unknown]
  - Product contamination [Unknown]

NARRATIVE: CASE EVENT DATE: 20181201
